APPROVED DRUG PRODUCT: IBUPROFEN
Active Ingredient: IBUPROFEN
Strength: 600MG
Dosage Form/Route: TABLET;ORAL
Application: A214699 | Product #002 | TE Code: AB
Applicant: ALKEM LABORATORIES LTD
Approved: Sep 13, 2021 | RLD: No | RS: No | Type: RX